FAERS Safety Report 8078117-2 (Version None)
Quarter: 2012Q1

REPORT INFORMATION
  Report Type: 
  Country: None (occurrence: None)
  Receive Date: 20120127
  Receipt Date: 20110316
  Transmission Date: 20120608
  Serious: No
  Sender: FDA-Public Use
  Company Number: US-ABBOTT-10P-163-0687366-00

PATIENT
  Sex: Female
  Weight: 86.26 kg

DRUGS (4)
  1. HUMIRA [Suspect]
     Indication: CROHN'S DISEASE
     Dates: start: 20100801
  2. CYTOMEL [Concomitant]
     Indication: HYPOTHYROIDISM
     Route: 048
  3. LEXAPRO [Concomitant]
     Indication: PANIC DISORDER
     Route: 048
  4. PRILOSEC [Concomitant]
     Indication: GASTROOESOPHAGEAL REFLUX DISEASE
     Route: 048

REACTIONS (12)
  - EYE SWELLING [None]
  - PALLOR [None]
  - INFLUENZA [None]
  - VISION BLURRED [None]
  - FEELING COLD [None]
  - YELLOW SKIN [None]
  - FEELING ABNORMAL [None]
  - JOINT SWELLING [None]
  - FATIGUE [None]
  - DRY MOUTH [None]
  - WEIGHT INCREASED [None]
  - HEADACHE [None]
